FAERS Safety Report 7931874-5 (Version None)
Quarter: 2011Q4

REPORT INFORMATION
  Report Type: 
  Country: None (occurrence: None)
  Receive Date: 20111121
  Receipt Date: 20111114
  Transmission Date: 20120403
  Serious: Yes (Life-Threatening, Hospitalization)
  Sender: FDA-Public Use
  Company Number: US-BAYER-2011-032110

PATIENT
  Age: 35 Year
  Sex: Female

DRUGS (5)
  1. YASMIN [Suspect]
     Indication: ORAL CONTRACEPTION
     Dosage: UNK
     Dates: start: 20051101, end: 20070901
  2. SYNTHROID [Concomitant]
     Indication: THYROID DISORDER
     Dosage: UNK UNK, CONT
     Dates: start: 19960101
  3. PRESCRIPTION DIET MEDICATION [Concomitant]
  4. YAZ [Suspect]
     Indication: ORAL CONTRACEPTION
     Dosage: UNK
     Dates: start: 20070901, end: 20090201
  5. NSAID'S [Concomitant]

REACTIONS (4)
  - CONVULSION [None]
  - THROMBOSIS [None]
  - INJURY [None]
  - CEREBROVASCULAR ACCIDENT [None]
